FAERS Safety Report 19380106 (Version 2)
Quarter: 2021Q2

REPORT INFORMATION
  Report Type: Report from Study
  Country: None (occurrence: BR)
  Receive Date: 20210607
  Receipt Date: 20210610
  Transmission Date: 20210717
  Serious: Yes (Hospitalization, Other)
  Sender: FDA-Public Use
  Company Number: BR-ABBVIE-21K-020-3884630-00

PATIENT
  Sex: Female
  Weight: 68 kg

DRUGS (13)
  1. FUROSEMIDE. [Suspect]
     Active Substance: FUROSEMIDE
     Indication: HYPERTENSION
     Route: 048
     Dates: start: 2013
  2. OLMESARTAN [Concomitant]
     Active Substance: OLMESARTAN
     Indication: HYPERTENSION
     Dosage: 40 MG + 25 MG?WHEN THE BLOOD PRESSURE INCREASES A LOT
     Route: 048
     Dates: start: 2013
  3. TRAMADOL. [Concomitant]
     Active Substance: TRAMADOL
     Indication: PRODUCT USED FOR UNKNOWN INDICATION
     Dates: start: 2018
  4. SELOZOK [Concomitant]
     Active Substance: METOPROLOL SUCCINATE
     Indication: HYPERTENSION
     Route: 048
     Dates: start: 2013
  5. ACERTIL [Concomitant]
     Active Substance: PERINDOPRIL
     Indication: HYPERTENSION
     Route: 048
     Dates: start: 2013
  6. HUMIRA [Suspect]
     Active Substance: ADALIMUMAB
     Route: 058
  7. HUMIRA [Suspect]
     Active Substance: ADALIMUMAB
     Route: 058
     Dates: end: 20210410
  8. HUMIRA [Suspect]
     Active Substance: ADALIMUMAB
     Route: 058
     Dates: start: 20210517
  9. AMLODIPINE [Concomitant]
     Active Substance: AMLODIPINE BESYLATE
     Indication: HYPERTENSION
     Dosage: 1 TABLET IN THE MORNING AND 1 AT NIGHT
     Route: 048
     Dates: start: 2013
  10. HUMIRA [Suspect]
     Active Substance: ADALIMUMAB
     Dosage: LOADING DOSE ? WEEK 02
     Route: 058
     Dates: start: 20141016, end: 20141016
  11. HUMIRA [Suspect]
     Active Substance: ADALIMUMAB
     Indication: CROHN^S DISEASE
     Dosage: LOADING DOSE ? WEEK 00
     Route: 058
     Dates: start: 20141002, end: 20141002
  12. PANTOPRAZOLE [Concomitant]
     Active Substance: PANTOPRAZOLE
     Indication: GASTRITIS
  13. DOMPERIDONE [Concomitant]
     Active Substance: DOMPERIDONE
     Indication: GASTRITIS

REACTIONS (34)
  - Intestinal operation [Unknown]
  - Blood pressure fluctuation [Unknown]
  - Dyspepsia [Recovered/Resolved]
  - Blood potassium decreased [Recovered/Resolved]
  - Malaise [Recovered/Resolved]
  - Hypertension [Unknown]
  - Pain [Unknown]
  - Suture related complication [Unknown]
  - Gastrointestinal hypomotility [Not Recovered/Not Resolved]
  - Intestinal obstruction [Unknown]
  - Crohn^s disease [Unknown]
  - Fistula [Recovered/Resolved]
  - Flatulence [Recovered/Resolved]
  - Vomiting [Recovering/Resolving]
  - Blood cholesterol increased [Recovered/Resolved]
  - Hospitalisation [Unknown]
  - Asthenia [Recovered/Resolved]
  - Arthralgia [Unknown]
  - Hypertension [Recovering/Resolving]
  - Liver disorder [Recovered/Resolved]
  - Vomiting [Unknown]
  - Swelling [Unknown]
  - Constipation [Recovering/Resolving]
  - Blood cholesterol increased [Recovered/Resolved]
  - Blood urea abnormal [Recovered/Resolved]
  - Blood creatinine abnormal [Recovered/Resolved]
  - Abdominal adhesions [Unknown]
  - Gastrointestinal inflammation [Unknown]
  - Lithiasis [Unknown]
  - Mobility decreased [Unknown]
  - Gastritis [Unknown]
  - Vomiting [Recovered/Resolved]
  - Abdominal distension [Recovering/Resolving]
  - Abdominal pain [Recovering/Resolving]

NARRATIVE: CASE EVENT DATE: 2017
